FAERS Safety Report 9271548 (Version 1)
Quarter: 2013Q2

REPORT INFORMATION
  Report Type: Report from Study
  Country: CA (occurrence: CA)
  Receive Date: 20130506
  Receipt Date: 20130506
  Transmission Date: 20140414
  Serious: Yes (Other)
  Sender: FDA-Public Use
  Company Number: CA-JNJFOC-20130416076

PATIENT
  Age: 43 Year
  Sex: Male
  Weight: 94 kg

DRUGS (10)
  1. REMICADE [Suspect]
     Indication: COLITIS ULCERATIVE
     Route: 042
     Dates: start: 200806
  2. PREDNISONE [Concomitant]
     Dosage: 20 (UNITS UNSPECIFIED)
     Route: 065
  3. ACTONEL [Concomitant]
     Route: 065
  4. CAL-D-OR [Concomitant]
     Route: 065
  5. DILTIAZEM [Concomitant]
     Dosage: 120 (UNITS UNSPECIFIED)
     Route: 065
  6. PRADAXA [Concomitant]
     Dosage: 150 (UNITS UNSPECIFIED)
     Route: 065
  7. METOPROLOL [Concomitant]
     Dosage: 100 (UNITS UNSPECIFIED)
     Route: 065
  8. ATACAND [Concomitant]
     Route: 065
  9. NORVASC [Concomitant]
     Route: 065
  10. CARDURA [Concomitant]
     Route: 065

REACTIONS (1)
  - Atrial fibrillation [Unknown]
